FAERS Safety Report 7623052-4 (Version None)
Quarter: 2011Q3

REPORT INFORMATION
  Report Type: 
  Country: None (occurrence: None)
  Receive Date: 20110720
  Receipt Date: 20110707
  Transmission Date: 20111222
  Serious: Yes (Hospitalization)
  Sender: FDA-Public Use
  Company Number: GB-AMGEN-GBRCT2011034710

PATIENT
  Age: 60 Year
  Sex: Male

DRUGS (10)
  1. PANITUMUMAB [Suspect]
     Indication: GASTROOESOPHAGEAL CANCER
     Dosage: UNK
     Dates: start: 20110521
  2. AMLODIPINE [Concomitant]
     Dosage: 5 MG, QD
     Dates: end: 20110525
  3. FUROSEMIDE [Concomitant]
     Dosage: 40 MG, QD
     Dates: start: 20110613
  4. EPIRUBICIN [Concomitant]
     Dosage: UNK
     Dates: start: 20110521
  5. RAMIPRIL [Concomitant]
     Dosage: 1.25 MG, QD
     Dates: end: 20110525
  6. DEXAMETHASONE [Concomitant]
     Dosage: 2 MG, QD
     Dates: start: 20110521
  7. ONDANSETRON [Concomitant]
     Dosage: 8 MG, BID
     Dates: start: 20110521
  8. METOCLOPRAMIDE [Concomitant]
     Dosage: 10 MG, PRN
     Dates: start: 20110521
  9. OXALIPLATIN [Concomitant]
     Dosage: UNK
     Dates: start: 20110521
  10. CAPECITABINE [Concomitant]
     Dosage: UNK
     Dates: start: 20110521

REACTIONS (1)
  - INFECTION [None]
